FAERS Safety Report 15211177 (Version 1)
Quarter: 2018Q3

REPORT INFORMATION
  Report Type: Spontaneous
  Country: US (occurrence: US)
  Receive Date: 20180629
  Receipt Date: 20180629
  Transmission Date: 20181010
  Serious: No
  Sender: FDA-Public Use
  Company Number: None

PATIENT
  Age: 37 Year
  Sex: Female
  Weight: 69.75 kg

DRUGS (2)
  1. PROTONIX [Suspect]
     Active Substance: PANTOPRAZOLE SODIUM
     Indication: GASTROOESOPHAGEAL REFLUX DISEASE
     Dosage: ?          QUANTITY:1 TABLET(S);?
     Route: 048
     Dates: start: 20180626, end: 20180629
  2. TUMS [Concomitant]
     Active Substance: CALCIUM CARBONATE

REACTIONS (8)
  - Nervousness [None]
  - Headache [None]
  - Nausea [None]
  - Anxiety [None]
  - Decreased appetite [None]
  - Dry eye [None]
  - Chest discomfort [None]
  - Insomnia [None]

NARRATIVE: CASE EVENT DATE: 20180628
